FAERS Safety Report 6078381-5 (Version None)
Quarter: 2009Q1

REPORT INFORMATION
  Report Type: 
  Country: None (occurrence: None)
  Receive Date: 20090213
  Receipt Date: 20090203
  Transmission Date: 20090719
  Serious: Yes (Death, Other)
  Sender: FDA-Public Use
  Company Number: IT-JNJCH-2009003799

PATIENT
  Age: 82 Year

DRUGS (1)
  1. ASPIRIN [Suspect]
     Indication: PLATELET FUNCTION TEST
     Dosage: TEXT:100 MG DAILY
     Route: 065

REACTIONS (2)
  - CARDIAC FAILURE CONGESTIVE [None]
  - CHEST PAIN [None]
